FAERS Safety Report 11281477 (Version 1)
Quarter: 2015Q3

REPORT INFORMATION
  Report Type: Report from Study
  Country: ES (occurrence: ES)
  Receive Date: 20150717
  Receipt Date: 20150717
  Transmission Date: 20151125
  Serious: Yes (Other)
  Sender: FDA-Public Use
  Company Number: ES-SA-2015SA102006

PATIENT
  Age: 64 Year
  Sex: Male

DRUGS (6)
  1. RANOLAZINE [Suspect]
     Active Substance: RANOLAZINE
     Route: 065
  2. ATENOLOL. [Concomitant]
     Active Substance: ATENOLOL
  3. IRBESARTAN. [Concomitant]
     Active Substance: IRBESARTAN
  4. ROSUVASTATIN [Concomitant]
     Active Substance: ROSUVASTATIN
  5. ACENOCOUMAROL [Concomitant]
     Active Substance: ACENOCOUMAROL
  6. DRONEDARONE [Suspect]
     Active Substance: DRONEDARONE
     Route: 065

REACTIONS (3)
  - Blood creatinine increased [Recovered/Resolved]
  - Atrioventricular block [Recovered/Resolved]
  - Acute kidney injury [Recovered/Resolved]
